FAERS Safety Report 22190277 (Version 1)
Quarter: 2023Q2

REPORT INFORMATION
  Report Type: Spontaneous
  Country: US (occurrence: US)
  Receive Date: 20230410
  Receipt Date: 20230410
  Transmission Date: 20230721
  Serious: Yes (Hospitalization)
  Sender: FDA-Public Use
  Company Number: US-AMGEN-USASP2023059756

PATIENT

DRUGS (1)
  1. EPOGEN [Suspect]
     Active Substance: ERYTHROPOIETIN
     Indication: Chronic kidney disease
     Dosage: UNK, 40,000 UNITS
     Route: 065

REACTIONS (1)
  - Sickle cell anaemia [Unknown]
